FAERS Safety Report 12067223 (Version 1)
Quarter: 2016Q1

REPORT INFORMATION
  Report Type: Spontaneous
  Country: US (occurrence: None)
  Receive Date: 20160210
  Receipt Date: 20160210
  Transmission Date: 20160526
  Serious: No
  Sender: FDA-Public Use
  Company Number: None

PATIENT
  Age: 66 Year
  Sex: Male
  Weight: 136.08 kg

DRUGS (1)
  1. UREA 40% CREAM 40% TRINITY PHARMACEUTICALS [Suspect]
     Active Substance: UREA
     Indication: HYPERKERATOSIS
     Dosage: SUFFICIENT AMOUNT  ONCE DAILY APPLIED TO A SURFACE, USUALLY THE SKIN
     Dates: start: 20150401, end: 20151101

REACTIONS (6)
  - Hyperkeratosis [None]
  - Product physical consistency issue [None]
  - Condition aggravated [None]
  - Product substitution issue [None]
  - Product use issue [None]
  - Drug ineffective [None]

NARRATIVE: CASE EVENT DATE: 20160209
